FAERS Safety Report 12398261 (Version 1)
Quarter: 2016Q2

REPORT INFORMATION
  Report Type: Report from Study
  Country: DK (occurrence: DE)
  Receive Date: 20160524
  Receipt Date: 20160524
  Transmission Date: 20160815
  Serious: Yes (Other)
  Sender: FDA-Public Use
  Company Number: DE-FRI-1000084843

PATIENT
  Age: 28 Year
  Sex: Male

DRUGS (6)
  1. OPIPRAMOL / OPIPRAMOL [Concomitant]
     Indication: PRODUCT USED FOR UNKNOWN INDICATION
     Route: 048
     Dates: start: 20150515, end: 20150705
  2. CITALOPRAM [Suspect]
     Active Substance: CITALOPRAM HYDROBROMIDE
     Dosage: UNKNOWN
     Route: 048
     Dates: start: 20150706, end: 20150712
  3. OPIPRAMOL / OPIPRAMOL [Concomitant]
     Route: 048
     Dates: start: 20150706, end: 20150719
  4. CITALOPRAM [Suspect]
     Active Substance: CITALOPRAM HYDROBROMIDE
     Dosage: UNKNOWN
     Route: 048
     Dates: start: 20150713, end: 20150716
  5. CITALOPRAM [Suspect]
     Active Substance: CITALOPRAM HYDROBROMIDE
     Indication: PRODUCT USED FOR UNKNOWN INDICATION
     Dosage: UNKNOWN
     Route: 048
     Dates: start: 20150515, end: 20150705
  6. L-THYROXIN / LEVOTHYROXINE [Concomitant]
     Indication: PRODUCT USED FOR UNKNOWN INDICATION
     Route: 048

REACTIONS (1)
  - Erectile dysfunction [Recovered/Resolved]

NARRATIVE: CASE EVENT DATE: 20150601
